FAERS Safety Report 9720374 (Version 3)
Quarter: 2014Q1

REPORT INFORMATION
  Report Type: Spontaneous
  Country: JP (occurrence: JP)
  Receive Date: 20131129
  Receipt Date: 20140219
  Transmission Date: 20141002
  Serious: Yes (Death, Hospitalization, Other)
  Sender: FDA-Public Use
  Company Number: JP-AMGEN-JPNSP2013084149

PATIENT
  Age: 80 Year
  Sex: Male
  Weight: 38 kg

DRUGS (7)
  1. ROMIPLATE [Suspect]
     Indication: IMMUNE THROMBOCYTOPENIC PURPURA
     Dosage: 250 MUG, QD
     Route: 058
     Dates: start: 20131010
  2. BAKTAR [Concomitant]
     Indication: PNEUMOCYSTIS JIROVECII PNEUMONIA
     Dosage: 1 DF, QD
     Route: 048
     Dates: start: 20130919, end: 20131015
  3. LANSOPRAZOLE [Concomitant]
     Indication: GASTROOESOPHAGEAL REFLUX DISEASE
     Dosage: 1 DF, QD
     Route: 048
     Dates: start: 20130919, end: 20131024
  4. MUCODYNE [Concomitant]
     Indication: PRODUCTIVE COUGH
     Dosage: 500 MG, TID
     Route: 048
     Dates: start: 20130919, end: 20131015
  5. MAGMITT [Concomitant]
     Indication: CONSTIPATION
     Dosage: 330 MG, TID
     Route: 048
     Dates: start: 20130919, end: 20131015
  6. FOSAMAC [Concomitant]
     Indication: OSTEOPOROSIS
     Dosage: 35 MG, 1X/WEEK
     Route: 048
     Dates: start: 20130919, end: 20131015
  7. PREDONINE                          /00016201/ [Concomitant]
     Indication: IMMUNE THROMBOCYTOPENIC PURPURA
     Dosage: 30 MG, BID
     Route: 048
     Dates: start: 20130321, end: 20131015

REACTIONS (3)
  - Thrombosis [Fatal]
  - Pulmonary embolism [Fatal]
  - Femur fracture [Unknown]
